FAERS Safety Report 14772625 (Version 2)
Quarter: 2018Q2

REPORT INFORMATION
  Report Type: Report from Study
  Country: KR (occurrence: KR)
  Receive Date: 20180418
  Receipt Date: 20180427
  Transmission Date: 20180711
  Serious: Yes (Death, Other)
  Sender: FDA-Public Use
  Company Number: KR-SUN PHARMACEUTICAL INDUSTRIES LTD-2018RR-170086

PATIENT
  Age: 128 Month
  Sex: Male

DRUGS (4)
  1. VINCRISTINE [Suspect]
     Active Substance: VINCRISTINE
     Indication: STEM CELL TRANSPLANT
     Dosage: MONTHLY
     Route: 065
  2. 6-MERCAPTOPURINE [Suspect]
     Active Substance: MERCAPTOPURINE
     Indication: STEM CELL TRANSPLANT
     Route: 048
  3. PREDNISOLONE. [Suspect]
     Active Substance: PREDNISOLONE
     Indication: STEM CELL TRANSPLANT
     Route: 048
  4. METHOTREXATE. [Suspect]
     Active Substance: METHOTREXATE
     Indication: STEM CELL TRANSPLANT
     Dosage: WEEKLY ORAL
     Route: 048

REACTIONS (7)
  - Platelet count decreased [Unknown]
  - Febrile neutropenia [Unknown]
  - Sepsis [Unknown]
  - Leukaemia recurrent [Fatal]
  - Neutropenia [Unknown]
  - Alanine aminotransferase increased [Unknown]
  - Aspartate aminotransferase increased [Unknown]
